FAERS Safety Report 6187672-9 (Version None)
Quarter: 2009Q2

REPORT INFORMATION
  Report Type: 
  Country: None (occurrence: None)
  Receive Date: 20090511
  Receipt Date: 20090502
  Transmission Date: 20091009
  Serious: Yes (Other)
  Sender: FDA-Public Use
  Company Number: AE-2009-031

PATIENT
  Age: 83 Year
  Sex: Male

DRUGS (7)
  1. METFORMIN HCL [Suspect]
     Indication: TYPE 2 DIABETES MELLITUS
     Dosage: 850MG, BID,
  2. ACENOCOUMAROL [Concomitant]
  3. DIGOXIN [Concomitant]
  4. TORSEMIDE [Concomitant]
  5. IRBESARTAN [Concomitant]
  6. ATENOLOL [Concomitant]
  7. SIMVASTATIN [Concomitant]

REACTIONS (1)
  - LIVER INJURY [None]
